FAERS Safety Report 8212235-0 (Version None)
Quarter: 2012Q1

REPORT INFORMATION
  Report Type: 
  Country: None (occurrence: None)
  Receive Date: 20120315
  Receipt Date: 20120308
  Transmission Date: 20120608
  Serious: Yes (Hospitalization, Other)
  Sender: FDA-Public Use
  Company Number: GB-UCBSA-051133

PATIENT
  Age: 57 Year
  Sex: Female
  Weight: 42 kg

DRUGS (12)
  1. CIMZIA [Suspect]
     Indication: RHEUMATOID ARTHRITIS
     Dosage: ONLY 1 DOSE
     Route: 058
     Dates: start: 20110905, end: 20110905
  2. ATORVASTATIN [Concomitant]
     Indication: HYPERLIPIDAEMIA
     Route: 048
  3. FOLIC ACID [Concomitant]
  4. LITHIUM CARBONATE [Concomitant]
  5. METHOTREXATE [Concomitant]
     Indication: RHEUMATOID ARTHRITIS
     Route: 048
     Dates: start: 20060101, end: 20111201
  6. INSULIN [Concomitant]
  7. DICLOFENAC SODIUM [Concomitant]
  8. DIPROBASE [Concomitant]
     Indication: PSORIASIS
  9. LISINOPRIL [Concomitant]
  10. ASPIRIN [Concomitant]
     Route: 048
  11. LITHIUM CARBONATE [Concomitant]
     Indication: DEPRESSION
     Route: 048
  12. OMEPRAZOLE [Concomitant]
     Indication: GASTRIC DISORDER
     Route: 048

REACTIONS (4)
  - BREAST CANCER [None]
  - ERYTHRODERMIC PSORIASIS [None]
  - PUSTULAR PSORIASIS [None]
  - BREAST CANCER FEMALE [None]
